FAERS Safety Report 6734464-5 (Version None)
Quarter: 2010Q2

REPORT INFORMATION
  Report Type: 
  Country: None (occurrence: None)
  Receive Date: 20100520
  Receipt Date: 20100511
  Transmission Date: 20101027
  Serious: Yes (Hospitalization)
  Sender: FDA-Public Use
  Company Number: BE-GILEAD-2010-0027863

PATIENT
  Sex: Male

DRUGS (4)
  1. ATRIPLA [Suspect]
     Indication: DRUG USE FOR UNKNOWN INDICATION
  2. TRUVADA [Concomitant]
     Dates: end: 20100101
  3. KALETRA [Concomitant]
     Dates: end: 20100101
  4. MELTREX [Concomitant]
     Dates: start: 20060101

REACTIONS (3)
  - APHTHOUS STOMATITIS [None]
  - NEUTROPENIA [None]
  - PYREXIA [None]
